FAERS Safety Report 19237070 (Version 1)
Quarter: 2021Q2

REPORT INFORMATION
  Report Type: Spontaneous
  Country: US (occurrence: US)
  Receive Date: 20210509
  Receipt Date: 20210509
  Transmission Date: 20210717
  Serious: Yes (Other)
  Sender: FDA-Public Use
  Company Number: None

PATIENT
  Age: 47 Year
  Sex: Female
  Weight: 60.3 kg

DRUGS (5)
  1. ADAPALENE 0.3 [Suspect]
     Active Substance: ADAPALENE
     Indication: ACNE
     Dosage: ?          QUANTITY:45 APPLY TO AFFECTED;?
     Route: 061
     Dates: start: 20210426, end: 20210502
  2. BIOTIN [Concomitant]
     Active Substance: BIOTIN
  3. VITAMIN E [Concomitant]
     Active Substance: .ALPHA.-TOCOPHEROL
  4. CALCIUM [Concomitant]
     Active Substance: CALCIUM
  5. MULTIVITAMINE [Concomitant]
     Active Substance: VITAMINS

REACTIONS (5)
  - Rash [None]
  - Eyelids pruritus [None]
  - Pruritus [None]
  - Eye swelling [None]
  - Eye pruritus [None]

NARRATIVE: CASE EVENT DATE: 20210504
